FAERS Safety Report 9693264 (Version 2)
Quarter: 2015Q4

REPORT INFORMATION
  Report Type: Report from Study
  Country: US (occurrence: US)
  Receive Date: 20131118
  Receipt Date: 20151127
  Transmission Date: 20160305
  Serious: Yes (Hospitalization, Disabling)
  Sender: FDA-Public Use
  Company Number: US-ROCHE-1301201

PATIENT
  Age: 53 Year
  Sex: Female

DRUGS (17)
  1. ZOFRAN [Concomitant]
     Active Substance: ONDANSETRON HYDROCHLORIDE
     Dosage: PRN
     Route: 065
  2. ABRAXANE [Concomitant]
     Active Substance: PACLITAXEL
     Route: 065
  3. ERIBULIN [Concomitant]
     Active Substance: ERIBULIN
     Route: 065
  4. AVASTIN [Suspect]
     Active Substance: BEVACIZUMAB
     Indication: BREAST CANCER FEMALE
     Route: 042
     Dates: start: 20110531
  5. TRAMADOL HCL [Concomitant]
     Active Substance: TRAMADOL HYDROCHLORIDE
     Route: 048
  6. ZYRTEC [Concomitant]
     Active Substance: CETIRIZINE HYDROCHLORIDE
     Dosage: PRN
     Route: 065
  7. DILANTIN [Concomitant]
     Active Substance: PHENYTOIN
     Route: 048
  8. DEXAMETHASONE. [Concomitant]
     Active Substance: DEXAMETHASONE
     Route: 065
  9. XELODA [Suspect]
     Active Substance: CAPECITABINE
     Dosage: BEGINNING CYCLE 2.
     Route: 048
  10. XELODA [Suspect]
     Active Substance: CAPECITABINE
     Route: 048
     Dates: start: 20110531
  11. ADRIAMYCIN [Concomitant]
     Active Substance: DOXORUBICIN HYDROCHLORIDE
     Route: 065
  12. ADRIAMYCIN [Concomitant]
     Active Substance: DOXORUBICIN HYDROCHLORIDE
     Route: 065
  13. XELODA [Suspect]
     Active Substance: CAPECITABINE
     Indication: BREAST CANCER FEMALE
     Dosage: TAKE 14 OF 21 DAYS
     Route: 048
     Dates: start: 20101109
  14. PROTONIX (UNITED STATES) [Concomitant]
     Route: 048
  15. KLOR-CON [Concomitant]
     Active Substance: POTASSIUM CHLORIDE
     Route: 048
  16. DECADRON [Concomitant]
     Active Substance: DEXAMETHASONE
     Route: 065
  17. ABRAXANE [Concomitant]
     Active Substance: PACLITAXEL
     Route: 065

REACTIONS (21)
  - Asthenia [Unknown]
  - Diplopia [Unknown]
  - Cough [Unknown]
  - Abasia [Unknown]
  - Neutropenia [Unknown]
  - Metastases to liver [Unknown]
  - Vomiting [Unknown]
  - Metastases to bone [Unknown]
  - Headache [Unknown]
  - Influenza [Unknown]
  - Metastases to lung [Unknown]
  - Mammogram abnormal [Unknown]
  - Lymphadenopathy [Unknown]
  - Lymphadenopathy mediastinal [Unknown]
  - Seizure [Unknown]
  - Fatigue [Unknown]
  - Dyspnoea [Unknown]
  - Febrile neutropenia [Unknown]
  - Epigastric discomfort [Unknown]
  - Wound [Unknown]
  - Hilar lymphadenopathy [Unknown]

NARRATIVE: CASE EVENT DATE: 20101214
